APPROVED DRUG PRODUCT: IMIPENEM AND CILASTATIN
Active Ingredient: CILASTATIN SODIUM; IMIPENEM
Strength: EQ 500MG BASE/VIAL;500MG/VIAL
Dosage Form/Route: POWDER;INTRAVENOUS
Application: A091007 | Product #001
Applicant: HOSPIRA INC
Approved: Nov 16, 2011 | RLD: No | RS: No | Type: DISCN